FAERS Safety Report 8901806 (Version 1)
Quarter: 2012Q4

REPORT INFORMATION
  Report Type: Spontaneous
  Country: FR (occurrence: None)
  Receive Date: 20121105
  Receipt Date: 20121105
  Transmission Date: 20130627
  Serious: Yes (Other)
  Sender: FDA-Public Use
  Company Number: 7169773

PATIENT
  Age: 41 Year
  Sex: Female

DRUGS (3)
  1. LEVOTHYROX [Suspect]
     Indication: HYPOTHYROIDISM
  2. PROGRAF [Suspect]
     Indication: GLOMERULONEPHRITIS MEMBRANOUS
  3. CORTANCYL [Suspect]
     Indication: GLOMERULONEPHRITIS

REACTIONS (2)
  - Abortion induced [None]
  - Maternal exposure timing unspecified [None]
